FAERS Safety Report 7382479 (Version 5)
Quarter: 2012Q4

REPORT INFORMATION
  Report Type: 
  Country: US (occurrence: US)
  Receive Date: 20100510
  Receipt Date: 20121108
  Transmission Date: 20130627
  Serious: Yes (Hospitalization, Other)
  Sender: FDA-Public Use
  Company Number: PHEH2010US03434

PATIENT
  Age: 3 Year
  Sex: Male

DRUGS (4)
  1. TEGRETOL [Suspect]
     Indication: CONVULSION
     Dosage: 30 mg, BID
     Dates: start: 19981101, end: 19981113
  2. INSULIN [Concomitant]
  3. PHENOBARBITAL [Concomitant]
  4. BENADRYL [Concomitant]

REACTIONS (34)
  - Toxic epidermal necrolysis [Unknown]
  - Stevens-Johnson syndrome [Unknown]
  - Injury [Unknown]
  - Deformity [Unknown]
  - Disability [Unknown]
  - Pain [Unknown]
  - Anxiety [Unknown]
  - Mental disorder [Unknown]
  - Decreased interest [Unknown]
  - Emotional distress [Unknown]
  - Rash [Unknown]
  - Pruritus [Unknown]
  - Skin discolouration [Unknown]
  - Skin exfoliation [Unknown]
  - Alopecia [Unknown]
  - Nail disorder [Unknown]
  - Pigmentation disorder [Unknown]
  - Urticaria [Unknown]
  - Swelling [Unknown]
  - Skin lesion [Unknown]
  - Skin burning sensation [Unknown]
  - Mucous membrane disorder [Unknown]
  - Scar [Unknown]
  - Blindness [Unknown]
  - Internal injury [Unknown]
  - Hypersensitivity [Unknown]
  - Conjunctivitis [Unknown]
  - Diabetic ketoacidosis [Unknown]
  - Metabolic acidosis [Unknown]
  - Drug hypersensitivity [Unknown]
  - Upper limb fracture [Unknown]
  - Sinusitis [Unknown]
  - Bronchitis [Unknown]
  - Rash maculo-papular [Unknown]
